FAERS Safety Report 6140513-8 (Version None)
Quarter: 2009Q1

REPORT INFORMATION
  Report Type: 
  Country: None (occurrence: None)
  Receive Date: 20090331
  Receipt Date: 20090325
  Transmission Date: 20090719
  Serious: Yes (Death)
  Sender: FDA-Public Use
  Company Number: 2009-193339-NL

PATIENT
  Age: 49 Year
  Sex: Female

DRUGS (4)
  1. REMERON [Suspect]
  2. ZYPREXA [Suspect]
  3. FENTANYL [Suspect]
  4. WELLBUTRIN [Suspect]

REACTIONS (8)
  - ACCIDENTAL DEATH [None]
  - CONDITION AGGRAVATED [None]
  - CONSTIPATION [None]
  - DRUG TOXICITY [None]
  - GASTROINTESTINAL HYPOMOTILITY [None]
  - PNEUMATOSIS INTESTINALIS [None]
  - REFUSAL OF TREATMENT BY PATIENT [None]
  - UNRESPONSIVE TO STIMULI [None]
